FAERS Safety Report 5387682-5 (Version None)
Quarter: 2007Q3

REPORT INFORMATION
  Report Type: 
  Country: None (occurrence: None)
  Receive Date: 20070716
  Receipt Date: 20070706
  Transmission Date: 20080115
  Serious: Yes (Other)
  Sender: FDA-Public Use
  Company Number: CA-ASTRAZENECA-2007UW15883

PATIENT
  Age: 55 Year
  Sex: Female

DRUGS (2)
  1. ARIMIDEX [Suspect]
     Indication: BREAST CANCER
     Route: 048
     Dates: start: 20050101, end: 20070101
  2. NOLVADEX [Suspect]
     Route: 048
     Dates: start: 20051101, end: 20051101

REACTIONS (10)
  - AMNESIA [None]
  - BREAST PAIN [None]
  - EYE DISORDER [None]
  - IMPETIGO [None]
  - INSOMNIA [None]
  - KNEE DEFORMITY [None]
  - MUSCULAR WEAKNESS [None]
  - OEDEMA PERIPHERAL [None]
  - OSTEOPENIA [None]
  - PAIN IN EXTREMITY [None]
